FAERS Safety Report 8152267-4 (Version None)
Quarter: 2012Q1

REPORT INFORMATION
  Report Type: 
  Country: None (occurrence: None)
  Receive Date: 20120221
  Receipt Date: 20120213
  Transmission Date: 20120608
  Serious: Yes (Hospitalization)
  Sender: FDA-Public Use
  Company Number: US-BAYER-2011-032256

PATIENT
  Age: 36 Year
  Sex: Female
  Weight: 111.11 kg

DRUGS (12)
  1. YASMIN [Suspect]
     Indication: MENSTRUATION IRREGULAR
  2. PREDNISONE TAB [Concomitant]
     Indication: BRONCHITIS
     Dosage: 10 MG, BID
     Dates: start: 20070108
  3. AMOXICILLIN [Concomitant]
     Dosage: 500 MG, TID
     Dates: start: 20070131
  4. FLOVENT [Concomitant]
  5. YASMIN [Suspect]
     Indication: CONTRACEPTION
     Dosage: UNK
     Dates: start: 20061019, end: 20070208
  6. PREDNISONE TAB [Concomitant]
     Indication: OROPHARYNGEAL PAIN
  7. AUGMENTIN '125' [Concomitant]
     Indication: OROPHARYNGEAL PAIN
  8. PREDNISONE TAB [Concomitant]
     Indication: ASTHMA
  9. DARVOCET [Concomitant]
  10. PREDNISONE TAB [Concomitant]
     Indication: EUSTACHIAN TUBE DYSFUNCTION
  11. AUGMENTIN '125' [Concomitant]
     Indication: EUSTACHIAN TUBE DYSFUNCTION
     Dosage: 875/125 MG
     Dates: start: 20070108
  12. CHLORHEXIDINE GLUCONATE [Concomitant]
     Indication: GINGIVITIS
     Dosage: 0.12%
     Dates: start: 20070131

REACTIONS (14)
  - HYPOXIA [None]
  - HYPOAESTHESIA [None]
  - GENERAL PHYSICAL HEALTH DETERIORATION [None]
  - CHEST PAIN [None]
  - DYSPNOEA [None]
  - DEEP VEIN THROMBOSIS [None]
  - PAIN IN EXTREMITY [None]
  - PAIN [None]
  - ANXIETY [None]
  - FEAR [None]
  - EMOTIONAL DISTRESS [None]
  - PULMONARY EMBOLISM [None]
  - MUSCULAR WEAKNESS [None]
  - FATIGUE [None]
